FAERS Safety Report 5775665-2 (Version None)
Quarter: 2008Q2

REPORT INFORMATION
  Report Type: 
  Country: None (occurrence: None)
  Receive Date: 20080617
  Receipt Date: 20080606
  Transmission Date: 20081010
  Serious: Yes (Death)
  Sender: FDA-Public Use
  Company Number: FI-TYCO HEALTHCARE/MALLINCKRODT-T200801000

PATIENT

DRUGS (2)
  1. METHADOSE [Suspect]
  2. ANTIARRHYTHMICS, CLASS I AND III [Concomitant]
     Indication: PROPHYLAXIS

REACTIONS (1)
  - BRUGADA SYNDROME [None]
